FAERS Safety Report 14972486 (Version 1)
Quarter: 2018Q2

REPORT INFORMATION
  Report Type: Spontaneous
  Country: US (occurrence: US)
  Receive Date: 20180605
  Receipt Date: 20180605
  Transmission Date: 20180711
  Serious: No
  Sender: FDA-Public Use
  Company Number: US-ASTRAZENECA-2018SE62627

PATIENT
  Age: 43 Year
  Sex: Female
  Weight: 53.5 kg

DRUGS (12)
  1. LEVOTHYROXINE. [Concomitant]
     Active Substance: LEVOTHYROXINE
     Indication: HYPOTHYROIDISM
     Route: 048
     Dates: start: 2012
  2. SYMBICORT [Suspect]
     Active Substance: BUDESONIDE\FORMOTEROL FUMARATE DIHYDRATE
     Indication: ASTHMA
     Dosage: 80/4.5 MCG, 1 PUFF IN MORNING AND 1 PUFF AT NIGHT
     Route: 055
     Dates: start: 20180504, end: 2018
  3. SYMBICORT [Suspect]
     Active Substance: BUDESONIDE\FORMOTEROL FUMARATE DIHYDRATE
     Indication: DYSPNOEA
     Dosage: 80/4.5 MCG, 1 PUFF IN MORNING AND 1 PUFF AT NIGHT
     Route: 055
     Dates: start: 20180504, end: 2018
  4. SYMBICORT [Suspect]
     Active Substance: BUDESONIDE\FORMOTEROL FUMARATE DIHYDRATE
     Indication: ASTHMA
     Dosage: 80/4.5 MCG, 2 PUFFS, TWO TIMES A DAY
     Route: 055
     Dates: start: 2018, end: 2018
  5. SYMBICORT [Suspect]
     Active Substance: BUDESONIDE\FORMOTEROL FUMARATE DIHYDRATE
     Indication: DYSPNOEA
     Dosage: 80/4.5 MCG, 1 PUFF, TWO TIMES A DAY
     Route: 055
     Dates: start: 2018, end: 2018
  6. SYMBICORT [Suspect]
     Active Substance: BUDESONIDE\FORMOTEROL FUMARATE DIHYDRATE
     Indication: ASTHMA
     Dosage: 80/4.5 MCG, 1 PUFF, TWO TIMES A DAY
     Route: 055
     Dates: start: 2018, end: 2018
  7. SYMBICORT [Suspect]
     Active Substance: BUDESONIDE\FORMOTEROL FUMARATE DIHYDRATE
     Indication: ASTHMA
     Dosage: 80/4.5 MCG, ONE PUFF IN THE MORNING
     Route: 055
     Dates: start: 20180505, end: 20180505
  8. SYMBICORT [Suspect]
     Active Substance: BUDESONIDE\FORMOTEROL FUMARATE DIHYDRATE
     Indication: DYSPNOEA
     Dosage: 80/4.5 MCG, 2 PUFFS IN MORNING AND 1 PUFF AT NIGHT
     Route: 055
     Dates: start: 2018, end: 2018
  9. SYMBICORT [Suspect]
     Active Substance: BUDESONIDE\FORMOTEROL FUMARATE DIHYDRATE
     Indication: DYSPNOEA
     Dosage: 80/4.5 MCG, 2 PUFFS, TWO TIMES A DAY
     Route: 055
     Dates: start: 2018, end: 2018
  10. SYMBICORT [Suspect]
     Active Substance: BUDESONIDE\FORMOTEROL FUMARATE DIHYDRATE
     Indication: ASTHMA
     Dosage: 80/4.5 MCG, 2 PUFFS IN MORNING AND 1 PUFF AT NIGHT
     Route: 055
     Dates: start: 2018, end: 2018
  11. SYMBICORT [Suspect]
     Active Substance: BUDESONIDE\FORMOTEROL FUMARATE DIHYDRATE
     Indication: DYSPNOEA
     Dosage: 80/4.5 MCG, ONE PUFF IN THE MORNING
     Route: 055
     Dates: start: 20180505, end: 20180505
  12. BLISOVI FE [Concomitant]
     Indication: CONTRACEPTION
     Route: 048

REACTIONS (8)
  - Dry mouth [Unknown]
  - Vision blurred [Unknown]
  - Nervousness [Not Recovered/Not Resolved]
  - Dizziness [Not Recovered/Not Resolved]
  - Insomnia [Unknown]
  - Headache [Recovered/Resolved]
  - Off label use [Unknown]
  - Anxiety [Unknown]

NARRATIVE: CASE EVENT DATE: 2018
